FAERS Safety Report 21138139 (Version 7)
Quarter: 2022Q4

REPORT INFORMATION
  Report Type: Report from Study
  Country: ES (occurrence: ES)
  Receive Date: 20220727
  Receipt Date: 20221120
  Transmission Date: 20230113
  Serious: Yes (Death, Hospitalization, Other)
  Sender: FDA-Public Use
  Company Number: ES-JNJFOC-20220740706

PATIENT
  Sex: Male

DRUGS (2)
  1. IMBRUVICA [Suspect]
     Active Substance: IBRUTINIB
     Indication: Chronic lymphocytic leukaemia
     Route: 048
  2. IMBRUVICA [Suspect]
     Active Substance: IBRUTINIB
     Indication: Chronic lymphocytic leukaemia
     Route: 048

REACTIONS (9)
  - Death [Fatal]
  - Groin pain [Fatal]
  - Gastrointestinal disorder [Fatal]
  - COVID-19 [Fatal]
  - Neoplasm [Fatal]
  - Pain [Unknown]
  - Vomiting [Unknown]
  - Flank pain [Fatal]
  - Gastrointestinal injury [Fatal]

NARRATIVE: CASE EVENT DATE: 20220701
